FAERS Safety Report 8418873-4 (Version None)
Quarter: 2012Q2

REPORT INFORMATION
  Report Type: 
  Country: None (occurrence: None)
  Receive Date: 20120607
  Receipt Date: 20120528
  Transmission Date: 20120825
  Serious: Yes (Death)
  Sender: FDA-Public Use
  Company Number: JP-ROCHE-1067450

PATIENT
  Sex: Male
  Weight: 59 kg

DRUGS (10)
  1. URSO 250 [Concomitant]
     Indication: LIVER DISORDER
     Route: 048
     Dates: start: 20120319, end: 20120430
  2. EMEND [Concomitant]
     Indication: PROPHYLAXIS OF NAUSEA AND VOMITING
     Route: 048
     Dates: start: 20120427, end: 20120429
  3. MAGLAX [Concomitant]
     Indication: CONSTIPATION
     Route: 048
     Dates: start: 20120322, end: 20120430
  4. OMEPRAZOLE [Concomitant]
     Indication: PROPHYLAXIS AGAINST GASTROINTESTINAL ULCER
     Route: 048
     Dates: start: 20120312, end: 20120501
  5. JANUVIA [Concomitant]
     Indication: DIABETES MELLITUS
     Route: 048
     Dates: start: 20120317, end: 20120501
  6. CISPLATIN [Concomitant]
     Indication: LUNG ADENOCARCINOMA METASTATIC
     Route: 041
     Dates: start: 20120328, end: 20120427
  7. MS CONTIN [Concomitant]
     Indication: CANCER PAIN
     Route: 048
     Dates: start: 20120426, end: 20120428
  8. AVASTIN [Suspect]
     Indication: LUNG ADENOCARCINOMA METASTATIC
     Route: 041
     Dates: start: 20120328, end: 20120427
  9. ALIMTA [Concomitant]
     Indication: LUNG ADENOCARCINOMA METASTATIC
     Route: 041
     Dates: start: 20120328, end: 20120427
  10. PANVITAN [Concomitant]
     Indication: PROPHYLAXIS
     Route: 048
     Dates: start: 20120314, end: 20120430

REACTIONS (5)
  - GASTROINTESTINAL NECROSIS [None]
  - ASPHYXIA [None]
  - SHOCK HAEMORRHAGIC [None]
  - UPPER GASTROINTESTINAL HAEMORRHAGE [None]
  - HYPERTENSION [None]
